FAERS Safety Report 7169001-7 (Version None)
Quarter: 2010Q4

REPORT INFORMATION
  Report Type: 
  Country: None (occurrence: None)
  Receive Date: 20101216
  Receipt Date: 20101206
  Transmission Date: 20110411
  Serious: Yes (Other)
  Sender: FDA-Public Use
  Company Number: US-MYLANLABS-2010S1019768

PATIENT
  Age: 16 Year
  Sex: Female
  Weight: 43.09 kg

DRUGS (3)
  1. AMNESTEEM [Suspect]
     Indication: ACNE
     Route: 048
     Dates: start: 20100922, end: 20101018
  2. ISOTRETINOIN [Suspect]
     Indication: ACNE
     Route: 048
     Dates: start: 20101019, end: 20101025
  3. YASMIN [Concomitant]
     Dates: start: 20100816, end: 20101125

REACTIONS (2)
  - MOOD ALTERED [None]
  - SUICIDAL IDEATION [None]
